FAERS Safety Report 8882072 (Version 2)
Quarter: 2012Q4

REPORT INFORMATION
  Report Type: Report from Study
  Country: US (occurrence: US)
  Receive Date: 20121102
  Receipt Date: 20121207
  Transmission Date: 20130627
  Serious: Yes (Other)
  Sender: FDA-Public Use
  Company Number: US-ABBOTT-12P-163-1001088-00

PATIENT
  Sex: Male
  Weight: 113.95 kg

DRUGS (7)
  1. HUMIRA [Suspect]
     Indication: RHEUMATOID ARTHRITIS
     Dates: start: 20120108
  2. HUMIRA [Suspect]
  3. NAPROXEN [Concomitant]
     Indication: PRODUCT USED FOR UNKNOWN INDICATION
     Dosage: 100mg daily
  4. GABAPENTIN [Concomitant]
     Indication: PRODUCT USED FOR UNKNOWN INDICATION
     Dosage: 600mg daily
  5. METHOTREXATE [Concomitant]
     Indication: RHEUMATOID ARTHRITIS
     Dosage: 2.5mg #5 weekly
  6. FOLIC ACID [Concomitant]
     Indication: VITAMIN SUPPLEMENTATION
  7. PROZAC [Concomitant]
     Indication: DEPRESSION

REACTIONS (4)
  - Joint injury [Recovered/Resolved]
  - Tendon rupture [Unknown]
  - Injection site pain [Not Recovered/Not Resolved]
  - Road traffic accident [Unknown]
